FAERS Safety Report 13697596 (Version 1)
Quarter: 2017Q2

REPORT INFORMATION
  Report Type: Spontaneous
  Country: US (occurrence: US)
  Receive Date: 20170628
  Receipt Date: 20170628
  Transmission Date: 20170830
  Serious: No
  Sender: FDA-Public Use
  Company Number: None

PATIENT
  Age: 71 Year
  Sex: Female
  Weight: 90 kg

DRUGS (13)
  1. VITAMIN B12 [Concomitant]
     Active Substance: CYANOCOBALAMIN
  2. MULTIVITAMIN/MINERAL [Concomitant]
  3. 2% MINOXIDIL TOPICAL SOLUTION US [Suspect]
     Active Substance: MINOXIDIL
     Indication: ALOPECIA
     Dosage: ?          OTHER STRENGTH:ML;QUANTITY:6 SPRAY(S);?
     Route: 061
     Dates: start: 20170605, end: 20170610
  4. BACLOFEN. [Concomitant]
     Active Substance: BACLOFEN
  5. CALCIUM [Concomitant]
     Active Substance: CALCIUM
  6. ALIGN PROBIOTIC [Concomitant]
  7. HYDROCODONE BITARTRATE AND ACETAMINOPHEN [Concomitant]
     Active Substance: ACETAMINOPHEN\HYDROCODONE BITARTRATE
  8. L-THYROXINE [Concomitant]
     Active Substance: LEVOTHYROXINE
  9. LISINOPRIL. [Concomitant]
     Active Substance: LISINOPRIL
  10. CARBAMAZEPINE. [Concomitant]
     Active Substance: CARBAMAZEPINE
  11. PANTOPRAZOLE [Concomitant]
     Active Substance: PANTOPRAZOLE
  12. VITAMIN D3 [Concomitant]
     Active Substance: CHOLECALCIFEROL
  13. DULCOLAX NOS [Concomitant]
     Active Substance: BISACODYL OR DOCUSATE SODIUM

REACTIONS (4)
  - Skin irritation [None]
  - Application site burn [None]
  - Application site exfoliation [None]
  - Pain of skin [None]

NARRATIVE: CASE EVENT DATE: 20170610
